FAERS Safety Report 19606916 (Version 1)
Quarter: 2021Q3

REPORT INFORMATION
  Report Type: Report from Study
  Country: DE (occurrence: DE)
  Receive Date: 20210725
  Receipt Date: 20210725
  Transmission Date: 20211014
  Serious: Yes (Hospitalization, Congenital Anomaly)
  Sender: FDA-Public Use
  Company Number: DE-BIOGEN-2018BI00529580

PATIENT
  Age: 0 Year
  Sex: Female
  Weight: 3.1 kg

DRUGS (4)
  1. PLEGRIDY [Suspect]
     Active Substance: PEGINTERFERON BETA-1A
     Indication: MATERNAL EXPOSURE TIMING UNSPECIFIED
     Route: 063
  2. PLEGRIDY [Suspect]
     Active Substance: PEGINTERFERON BETA-1A
     Route: 063
     Dates: start: 2017
  3. PLEGRIDY [Suspect]
     Active Substance: PEGINTERFERON BETA-1A
     Indication: MULTIPLE SCLEROSIS
     Route: 050
     Dates: start: 20141130, end: 20181115
  4. VITAMIN K [Concomitant]
     Active Substance: PHYTONADIONE
     Indication: PROPHYLAXIS
     Route: 048

REACTIONS (9)
  - Hyperbilirubinaemia neonatal [Recovered/Resolved]
  - Motion sickness [Not Recovered/Not Resolved]
  - Gastrooesophageal reflux disease [Not Recovered/Not Resolved]
  - Developmental hip dysplasia [Recovered/Resolved]
  - Umbilical hernia [Recovered/Resolved with Sequelae]
  - Ophthalmological examination abnormal [Recovered/Resolved]
  - Maternal exposure during breast feeding [Unknown]
  - Neonatal infection [Recovered/Resolved]
  - Haemangioma [Not Recovered/Not Resolved]

NARRATIVE: CASE EVENT DATE: 201701
